FAERS Safety Report 25384879 (Version 1)
Quarter: 2025Q2

REPORT INFORMATION
  Report Type: Spontaneous
  Country: US (occurrence: None)
  Receive Date: 20250530
  Receipt Date: 20250530
  Transmission Date: 20250717
  Serious: Yes (Other)
  Sender: FDA-CTU
  Company Number: None

PATIENT
  Age: 57 Year
  Sex: Female
  Weight: 54 kg

DRUGS (3)
  1. LISDEXAMFETAMINE [Suspect]
     Active Substance: LISDEXAMFETAMINE
  2. Lannett [Concomitant]
     Dates: start: 20241204, end: 20250528
  3. Avogen [Concomitant]
     Dates: start: 20240912, end: 20241203

REACTIONS (2)
  - Migraine [None]
  - Hypertension [None]

NARRATIVE: CASE EVENT DATE: 20250528
